FAERS Safety Report 12550355 (Version 1)
Quarter: 2016Q3

REPORT INFORMATION
  Report Type: Spontaneous
  Country: JP (occurrence: DE)
  Receive Date: 20160712
  Receipt Date: 20160712
  Transmission Date: 20161109
  Serious: Yes (Congenital Anomaly)
  Sender: FDA-Public Use
  Company Number: JP-SUNOVION-2016SUN001697

PATIENT

DRUGS (8)
  1. NASONEX [Suspect]
     Active Substance: MOMETASONE FUROATE
     Indication: PRODUCT USED FOR UNKNOWN INDICATION
     Dosage: 0.4 MG, QD
     Route: 064
     Dates: start: 20150525, end: 20160227
  2. BERODUAL [Suspect]
     Active Substance: FENOTEROL HYDROBROMIDE\IPRATROPIUM BROMIDE
     Indication: PRODUCT USED FOR UNKNOWN INDICATION
     Dosage: 20/50 MCG
     Route: 064
     Dates: start: 20150525, end: 20160227
  3. L-THYROXIN [Concomitant]
     Active Substance: LEVOTHYROXINE SODIUM
     Dosage: UNK
     Route: 064
     Dates: start: 20150525, end: 20160227
  4. ALVESCO [Suspect]
     Active Substance: CICLESONIDE
     Indication: PRODUCT USED FOR UNKNOWN INDICATION
     Dosage: 160 ?G, QD
     Route: 064
     Dates: start: 20150525, end: 20160227
  5. FEXOFENADINE [Suspect]
     Active Substance: FEXOFENADINE\FEXOFENADINE HYDROCHLORIDE
     Indication: PRODUCT USED FOR UNKNOWN INDICATION
     Dosage: 120 MG, QD
     Route: 064
     Dates: start: 20150525, end: 20150713
  6. CALCIUM-SANDOZ D3 FF [Concomitant]
     Dosage: UNK
     Route: 064
     Dates: start: 20150525, end: 20160227
  7. ROCALTROL [Concomitant]
     Active Substance: CALCITRIOL
     Dosage: UNK
     Route: 064
     Dates: start: 20150525, end: 20160227
  8. FOLIC ACID. [Concomitant]
     Active Substance: FOLIC ACID
     Dosage: UNK
     Route: 064

REACTIONS (2)
  - Fallot^s tetralogy [Not Recovered/Not Resolved]
  - Small for dates baby [Not Recovered/Not Resolved]

NARRATIVE: CASE EVENT DATE: 20160227
